FAERS Safety Report 7927120-9 (Version None)
Quarter: 2011Q4

REPORT INFORMATION
  Report Type: 
  Country: None (occurrence: None)
  Receive Date: 20111117
  Receipt Date: 20111117
  Transmission Date: 20120403
  Serious: No
  Sender: FDA-Public Use
  Company Number: None

PATIENT

DRUGS (3)
  1. CYTRA-2 [Suspect]
  2. POTASSIUM CHLORIDE [Suspect]
  3. POTASSIUM CHLORIDE [Suspect]

REACTIONS (3)
  - WRONG DRUG ADMINISTERED [None]
  - MEDICATION ERROR [None]
  - DRUG DISPENSING ERROR [None]
